FAERS Safety Report 15867977 (Version 1)
Quarter: 2019Q1

REPORT INFORMATION
  Report Type: Spontaneous
  Country: GB (occurrence: GB)
  Receive Date: 20190125
  Receipt Date: 20190125
  Transmission Date: 20190417
  Serious: Yes (Other)
  Sender: FDA-Public Use
  Company Number: PHHY2018GB079870

PATIENT
  Age: 27 Year
  Sex: Female

DRUGS (2)
  1. ELTROMBOPAG [Suspect]
     Active Substance: ELTROMBOPAG
     Indication: BLOOD IRON INCREASED
  2. ELTROMBOPAG [Suspect]
     Active Substance: ELTROMBOPAG
     Indication: IMMUNE THROMBOCYTOPENIC PURPURA
     Dosage: 75 MG, UNK
     Route: 048
     Dates: start: 201511, end: 201805

REACTIONS (1)
  - Iron deficiency [Recovered/Resolved]

NARRATIVE: CASE EVENT DATE: 201710
